FAERS Safety Report 25515927 (Version 8)
Quarter: 2025Q3

REPORT INFORMATION
  Report Type: Spontaneous
  Country: EU (occurrence: EU)
  Receive Date: 20250704
  Receipt Date: 20250811
  Transmission Date: 20251020
  Serious: Yes (Other)
  Sender: Haleon PLC
  Company Number: EU-002147023-NVSC2025DE104996

PATIENT
  Sex: Male

DRUGS (22)
  1. DICLOFENAC [Suspect]
     Active Substance: DICLOFENAC
     Indication: Back pain
  2. DICLOFENAC [Suspect]
     Active Substance: DICLOFENAC
     Indication: Pain in extremity
     Dates: start: 20250623
  3. DICLOFENAC [Suspect]
     Active Substance: DICLOFENAC
  4. OXYCODONE [Concomitant]
     Active Substance: OXYCODONE
     Indication: Product used for unknown indication
  5. OXYCODONE [Concomitant]
     Active Substance: OXYCODONE
  6. FLECAINIDE [Concomitant]
     Active Substance: FLECAINIDE
     Indication: Product used for unknown indication
  7. FLECAINIDE [Concomitant]
     Active Substance: FLECAINIDE
  8. FLECAINIDE [Concomitant]
     Active Substance: FLECAINIDE
  9. FLECAINIDE [Concomitant]
     Active Substance: FLECAINIDE
  10. FLECAINIDE [Concomitant]
     Active Substance: FLECAINIDE
  11. DENOSUMAB [Concomitant]
     Active Substance: DENOSUMAB
     Indication: Product used for unknown indication
  12. DENOSUMAB [Concomitant]
     Active Substance: DENOSUMAB
  13. TAMSULOSIN [Concomitant]
     Active Substance: TAMSULOSIN
     Indication: Product used for unknown indication
  14. TAMSULOSIN [Concomitant]
     Active Substance: TAMSULOSIN
  15. TRIPTORELIN [Concomitant]
     Active Substance: TRIPTORELIN
     Indication: Product used for unknown indication
  16. TRIPTORELIN [Concomitant]
     Active Substance: TRIPTORELIN
  17. ELIQUIS [Concomitant]
     Active Substance: APIXABAN
     Indication: Product used for unknown indication
     Dosage: 10 MG, QD (5MG, BID) PATIENT ROA: UNKNOWN
  18. VOLTAREN [Concomitant]
     Active Substance: DICLOFENAC SODIUM
     Indication: Pain
  19. VOLTAREN [Concomitant]
     Active Substance: DICLOFENAC SODIUM
  20. VOLTAREN [Suspect]
     Active Substance: DICLOFENAC SODIUM
     Indication: Pain in extremity
     Dosage: 2 DOSAGE FORM, QD (UNK, BID (145.6 MG DICLOFENAC-COLESTYRAMINE (OR 75 MG DICLOFENAC-SODIUM)) MORN...
     Dates: start: 20250623
  21. VOLTAREN [Suspect]
     Active Substance: DICLOFENAC SODIUM
  22. VOLTAREN [Suspect]
     Active Substance: DICLOFENAC SODIUM
     Dosage: 2 DOSAGE FORM, QD (UNK, BID (145.6 MG DICLOFENAC-COLESTYRAMINE (OR 75 MG DICLOFENAC-SODIUM)) MORN...
     Dates: start: 20250623

REACTIONS (5)
  - Gastrointestinal perforation [Recovered/Resolved]
  - Irritable bowel syndrome [Unknown]
  - Drug ineffective [Unknown]
  - Dyspepsia [Unknown]
  - Inflammation [Unknown]

NARRATIVE: CASE EVENT DATE: 20250626
